FAERS Safety Report 9334063 (Version 1)
Quarter: 2013Q2

REPORT INFORMATION
  Report Type: Spontaneous
  Country: GB (occurrence: None)
  Receive Date: 20130604
  Receipt Date: 20130604
  Transmission Date: 20140414
  Serious: Yes (Hospitalization, Other)
  Sender: FDA-Public Use
  Company Number: AUR-APL-2013-04482

PATIENT
  Age: 40 Year
  Sex: Female
  Weight: 53.97 kg

DRUGS (4)
  1. SERTRALINE (SERTRALINE) (SERTRALINE) [Suspect]
     Indication: DEPRESSION
     Route: 048
     Dates: start: 20130504, end: 20130504
  2. PARACETAMOL (PARACETAMOL) [Concomitant]
  3. SYMBICORT [Concomitant]
  4. TERBUTALINE (TERBUTALINE) NEBULISER SOLUTION, 5MG/2ML [Concomitant]

REACTIONS (13)
  - Anxiety [None]
  - Restlessness [None]
  - Fear [None]
  - Palpitations [None]
  - Palpitations [None]
  - Chest pain [None]
  - Diarrhoea [None]
  - Hyperhidrosis [None]
  - Chills [None]
  - Tremor [None]
  - Muscle twitching [None]
  - Mydriasis [None]
  - Serotonin syndrome [None]
